FAERS Safety Report 6081987-0 (Version None)
Quarter: 2009Q1

REPORT INFORMATION
  Report Type: 
  Country: None (occurrence: None)
  Receive Date: 20090218
  Receipt Date: 20080715
  Transmission Date: 20090719
  Serious: No
  Sender: FDA-Public Use
  Company Number: US-BRISTOL-MYERS SQUIBB COMPANY-14263990

PATIENT
  Age: 60 Year
  Sex: Female

DRUGS (3)
  1. GLUCOPHAGE [Suspect]
     Dosage: 3-4 TIMES PER DAY
  2. NIASPAN [Concomitant]
  3. AVANDIA [Concomitant]

REACTIONS (1)
  - DIARRHOEA [None]
